FAERS Safety Report 6757018-3 (Version None)
Quarter: 2010Q2

REPORT INFORMATION
  Report Type: 
  Country: None (occurrence: None)
  Receive Date: 20100604
  Receipt Date: 20100525
  Transmission Date: 20101027
  Serious: Yes (Other)
  Sender: FDA-Public Use
  Company Number: CH-ELI_LILLY_AND_COMPANY-CH201005007926

PATIENT
  Age: 38 Year
  Sex: Female

DRUGS (2)
  1. FLUCTINE [Suspect]
     Indication: DEPRESSION
     Dosage: 20 MG, DAILY (1/D)
     Route: 048
     Dates: end: 20100219
  2. FLUCTINE [Suspect]
     Dosage: 20 MG, QOD
     Route: 048
     Dates: start: 20100220, end: 20100301

REACTIONS (3)
  - INCORRECT DOSE ADMINISTERED [None]
  - PARAESTHESIA [None]
  - WITHDRAWAL SYNDROME [None]
